FAERS Safety Report 15348268 (Version 4)
Quarter: 2019Q2

REPORT INFORMATION
  Report Type: Report from Study
  Country: JP (occurrence: JP)
  Receive Date: 20180904
  Receipt Date: 20190607
  Transmission Date: 20190711
  Serious: Yes (Hospitalization, Other)
  Sender: FDA-Public Use
  Company Number: JP-GLAXOSMITHKLINE-JP2018JPN156705

PATIENT
  Sex: Female
  Weight: 33 kg

DRUGS (17)
  1. PERSANTINE [Concomitant]
     Active Substance: DIPYRIDAMOLE
     Dosage: UNK
  2. BELIMUMAB [Suspect]
     Active Substance: BELIMUMAB
     Indication: LUPUS NEPHRITIS
     Dosage: 10 MG/KG, ONCE IN EVERY 4 WEEKS
     Route: 041
     Dates: start: 20180412, end: 20181129
  3. PREDNISOLONE. [Suspect]
     Active Substance: PREDNISOLONE
     Indication: SYSTEMIC LUPUS ERYTHEMATOSUS
     Dosage: 10 MG, 1D
     Route: 048
     Dates: start: 20170214, end: 20181031
  4. PROGRAF [Suspect]
     Active Substance: TACROLIMUS\TACROLIMUS ANHYDROUS
     Dosage: 1.2 MG, 1D
     Route: 048
  5. PREDNISOLONE. [Suspect]
     Active Substance: PREDNISOLONE
     Dosage: 9 MG, 1D
     Route: 048
     Dates: start: 20181101
  6. CARELOAD LA [Concomitant]
     Active Substance: BERAPROST SODIUM
     Indication: RAYNAUD^S PHENOMENON
     Dosage: UNK
  7. FEBURIC [Concomitant]
     Active Substance: FEBUXOSTAT
     Dosage: UNK
  8. BELIMUMAB [Suspect]
     Active Substance: BELIMUMAB
     Indication: SYSTEMIC LUPUS ERYTHEMATOSUS
     Dosage: 10 MG/KG, EVERY TWO WEEKS
     Route: 041
     Dates: start: 20180208, end: 20180308
  9. PROGRAF [Suspect]
     Active Substance: TACROLIMUS\TACROLIMUS ANHYDROUS
     Dosage: 1.5 MG, 1D
     Route: 048
  10. TAKECAB [Concomitant]
     Active Substance: VONOPRAZAN FUMURATE
     Dosage: UNK
  11. BAKTAR [Concomitant]
     Active Substance: SULFAMETHOXAZOLE\TRIMETHOPRIM
     Dosage: UNK
  12. EPADEL S [Concomitant]
     Active Substance: ICOSAPENT ETHYL
     Dosage: UNK
  13. HERBESSER [Concomitant]
     Active Substance: DILTIAZEM HYDROCHLORIDE
     Dosage: UNK
  14. BAYASPIRIN [Concomitant]
     Active Substance: ASPIRIN
     Dosage: UNK
  15. ONEALFA [Concomitant]
     Active Substance: ALFACALCIDOL
     Dosage: UNK
  16. ZYLORIC [Concomitant]
     Active Substance: ALLOPURINOL
     Indication: HYPERURICAEMIA
     Dosage: UNK
  17. MODACIN [Concomitant]
     Active Substance: CEFTAZIDIME
     Dosage: UNK

REACTIONS (6)
  - White blood cell count decreased [Recovered/Resolved]
  - Cytomegalovirus chorioretinitis [Recovering/Resolving]
  - Pneumonia [Recovered/Resolved]
  - White blood cell count decreased [Recovered/Resolved]
  - Pneumonia [Recovered/Resolved]
  - Pneumonia [Recovered/Resolved]

NARRATIVE: CASE EVENT DATE: 20180510
